FAERS Safety Report 22233631 (Version 1)
Quarter: 2023Q2

REPORT INFORMATION
  Report Type: Spontaneous
  Country: US (occurrence: None)
  Receive Date: 20230420
  Receipt Date: 20230420
  Transmission Date: 20230722
  Serious: Yes (Other)
  Sender: FDA-Public Use
  Company Number: 2023A086281

PATIENT
  Age: 20864 Day
  Sex: Female

DRUGS (2)
  1. BREZTRI [Suspect]
     Active Substance: BUDESONIDE\FORMOTEROL\GLYCOPYRROLATE
     Indication: Asthma
     Dosage: TWO PUFFS TWICE A DAY
     Route: 055
     Dates: start: 202206
  2. BREZTRI [Suspect]
     Active Substance: BUDESONIDE\FORMOTEROL\GLYCOPYRROLATE
     Indication: Chronic obstructive pulmonary disease
     Dosage: TWO PUFFS TWICE A DAY
     Route: 055
     Dates: start: 202206

REACTIONS (6)
  - Spinal column injury [Unknown]
  - Spinal fracture [Unknown]
  - Thoracic vertebral fracture [Unknown]
  - Device issue [Unknown]
  - Spinal pain [Unknown]
  - Osteoporosis [Unknown]

NARRATIVE: CASE EVENT DATE: 20230115
